FAERS Safety Report 22045341 (Version 3)
Quarter: 2023Q2

REPORT INFORMATION
  Report Type: Spontaneous
  Country: BR (occurrence: BR)
  Receive Date: 20230228
  Receipt Date: 20230410
  Transmission Date: 20230722
  Serious: Yes (Other)
  Sender: FDA-Public Use
  Company Number: BR-PFIZER INC-202300082805

PATIENT
  Sex: Male

DRUGS (2)
  1. CAVERJECT [Suspect]
     Active Substance: ALPROSTADIL
     Dosage: 10 UG
  2. CAVERJECT [Suspect]
     Active Substance: ALPROSTADIL
     Dosage: 10 UG

REACTIONS (3)
  - Prostatic operation [Unknown]
  - Therapeutic product effect decreased [Unknown]
  - Therapeutic product effect delayed [Unknown]

NARRATIVE: CASE EVENT DATE: 20060101
